FAERS Safety Report 7632164-0 (Version None)
Quarter: 2011Q3

REPORT INFORMATION
  Report Type: 
  Country: None (occurrence: None)
  Receive Date: 20110725
  Receipt Date: 20110524
  Transmission Date: 20111222
  Serious: No
  Sender: FDA-Public Use
  Company Number: US-BRISTOL-MYERS SQUIBB COMPANY-15771827

PATIENT
  Age: 72 Year
  Sex: Female
  Weight: 77 kg

DRUGS (3)
  1. LOPRESSOR [Concomitant]
  2. COUMADIN [Suspect]
     Indication: ATRIAL FIBRILLATION
  3. LANOXIN [Concomitant]

REACTIONS (5)
  - ARTHRALGIA [None]
  - CHILLS [None]
  - ALOPECIA [None]
  - ASTHENIA [None]
  - CONFUSIONAL STATE [None]
